FAERS Safety Report 14630392 (Version 1)
Quarter: 2018Q1

REPORT INFORMATION
  Report Type: Spontaneous
  Country: US (occurrence: US)
  Receive Date: 20180313
  Receipt Date: 20180313
  Transmission Date: 20180509
  Serious: Yes (Disabling)
  Sender: FDA-Public Use
  Company Number: None

PATIENT
  Age: 44 Year
  Sex: Female
  Weight: 85.5 kg

DRUGS (10)
  1. LIALDA [Concomitant]
     Active Substance: MESALAMINE
  2. CLARITIN [Concomitant]
     Active Substance: LORATADINE
  3. TECFIDERA [Suspect]
     Active Substance: DIMETHYL FUMARATE
     Indication: MULTIPLE SCLEROSIS
     Dosage: ?          QUANTITY:1 CAPSULE(S);?
     Route: 048
  4. NORTRIPTALINE [Concomitant]
  5. PAMALOR [Concomitant]
  6. AKA [Concomitant]
  7. PRISTIQ EXTENDED-RELEASE [Concomitant]
     Active Substance: DESVENLAFAXINE SUCCINATE
  8. JUNEL [Concomitant]
     Active Substance: ETHINYL ESTRADIOL\NORETHINDRONE ACETATE
  9. MELATONIN [Concomitant]
     Active Substance: MELATONIN
  10. VITAMIN D3 [Concomitant]
     Active Substance: CHOLECALCIFEROL

REACTIONS (6)
  - Nasopharyngitis [None]
  - Crohn^s disease [None]
  - Gastritis [None]
  - Fatigue [None]
  - Influenza [None]
  - Epstein-Barr virus infection [None]

NARRATIVE: CASE EVENT DATE: 20180206
